FAERS Safety Report 9730270 (Version 2)
Quarter: 2013Q4

REPORT INFORMATION
  Report Type: Report from Study
  Country: AU (occurrence: AU)
  Receive Date: 20131202
  Receipt Date: 20131212
  Transmission Date: 20140711
  Serious: Yes (Other)
  Sender: FDA-Public Use
  Company Number: PHHY2013AU139353

PATIENT
  Sex: Female
  Weight: 60 kg

DRUGS (14)
  1. ACLASTA [Suspect]
     Indication: OSTEOPOROSIS
     Dosage: 5 MG, UNK
     Route: 042
     Dates: start: 20110816
  2. ACLASTA [Suspect]
     Dosage: 5 MG, UNK
     Route: 042
     Dates: start: 20121005
  3. AMIODARONE [Concomitant]
     Dosage: 1 TABLET (200 MG), DAILY
  4. AMLO A [Concomitant]
     Dosage: 1 TABLET (5 MG), DAILY
  5. CARTIA                                  /AUS/ [Concomitant]
     Dosage: 1 TABLET (100 MG), DAILY
  6. DIGOXIN [Concomitant]
     Dosage: 2 TABLETS IN THE MORNING
  7. FRUSEMIDE [Concomitant]
     Dosage: 1 TABLET (40 MG), BID
  8. NEXIUM 1-2-3 [Concomitant]
     Dosage: 1 TABLET (40 MG), DAILY
  9. NORSPAN-M [Concomitant]
     Dosage: 5 UG/HR, QW
     Route: 062
  10. OSTELIN [Concomitant]
     Dosage: 1 GEL CAPSULE (1000 IU), DAILY
  11. PANADOL OSTEO [Concomitant]
     Dosage: 2 TABLETS OF 665MG, TID
  12. SLOW K [Concomitant]
     Dosage: 600 MG, BID
  13. SYMBICORT [Concomitant]
     Dosage: 1 PUFF (200/6 MCG), Q12H
  14. XARELTO [Concomitant]
     Dosage: 1 TABLET (20 MG), DAILY

REACTIONS (3)
  - Cardiac disorder [Unknown]
  - Dyspnoea [Unknown]
  - Malaise [Unknown]
